FAERS Safety Report 21399605 (Version 2)
Quarter: 2022Q4

REPORT INFORMATION
  Report Type: Spontaneous
  Country: LU (occurrence: LU)
  Receive Date: 20221001
  Receipt Date: 20221227
  Transmission Date: 20230113
  Serious: Yes (Hospitalization)
  Sender: FDA-Public Use
  Company Number: LU-TEVA-2022-LU-2077389

PATIENT
  Age: 52 Year
  Sex: Female

DRUGS (1)
  1. COPAXONE [Suspect]
     Active Substance: GLATIRAMER ACETATE
     Indication: Multiple sclerosis
     Route: 058
     Dates: start: 2002, end: 20220725

REACTIONS (1)
  - Embolia cutis medicamentosa [Recovering/Resolving]

NARRATIVE: CASE EVENT DATE: 20220725
